FAERS Safety Report 8344743-6 (Version None)
Quarter: 2012Q2

REPORT INFORMATION
  Report Type: 
  Country: None (occurrence: None)
  Receive Date: 20120508
  Receipt Date: 20120430
  Transmission Date: 20120825
  Serious: Yes (Other)
  Sender: FDA-Public Use
  Company Number: US-ASTRAZENECA-2010SE43137

PATIENT
  Age: 82 Year
  Sex: Female
  Weight: 76.2 kg

DRUGS (3)
  1. TAMOXIFEN CITRATE [Suspect]
     Route: 048
  2. CRESTOR [Suspect]
     Route: 048
  3. ARIMIDEX [Concomitant]

REACTIONS (2)
  - BREAST CANCER RECURRENT [None]
  - NEOPLASM MALIGNANT [None]
